FAERS Safety Report 13894588 (Version 1)
Quarter: 2017Q3

REPORT INFORMATION
  Report Type: Spontaneous
  Country: US (occurrence: US)
  Receive Date: 20170817
  Receipt Date: 20170817
  Transmission Date: 20171127
  Serious: No
  Sender: FDA-Public Use
  Company Number: None

PATIENT
  Age: 52 Year
  Sex: Female
  Weight: 92.7 kg

DRUGS (17)
  1. ABILIFY [Suspect]
     Active Substance: ARIPIPRAZOLE
     Indication: DRUG THERAPY
     Dosage: ?          QUANTITY:1 TABLET(S) AT BEDTIME ORAL?
     Route: 048
     Dates: start: 20170815, end: 20170817
  2. STOOL SOFTENER (DOCUSATE) [Concomitant]
     Active Substance: DOCUSATE
  3. MORPHINE SULFATE SOLUTION [Concomitant]
  4. NEXIUM [Concomitant]
     Active Substance: ESOMEPRAZOLE MAGNESIUM
  5. TRIMOPRITHEN [Concomitant]
  6. FENTANYL. [Concomitant]
     Active Substance: FENTANYL
  7. PRAVACHOL [Concomitant]
     Active Substance: PRAVASTATIN SODIUM
  8. ZANTAC [Concomitant]
     Active Substance: RANITIDINE HYDROCHLORIDE
  9. URECHOLINE [Concomitant]
     Active Substance: BETHANECHOL CHLORIDE
  10. VITAMIN C [Concomitant]
     Active Substance: ASCORBIC ACID
  11. OXYCONTIN [Concomitant]
     Active Substance: OXYCODONE HYDROCHLORIDE
  12. GENAMYACIN [Concomitant]
  13. MUCINEX [Concomitant]
     Active Substance: GUAIFENESIN
  14. PRISTIQ EXTENDED-RELEASE [Concomitant]
     Active Substance: DESVENLAFAXINE SUCCINATE
  15. PERCOCET [Concomitant]
     Active Substance: ACETAMINOPHEN\OXYCODONE HYDROCHLORIDE
  16. HYPREX [Concomitant]
  17. MIRALAX [Concomitant]
     Active Substance: POLYETHYLENE GLYCOL 3350

REACTIONS (15)
  - Fatigue [None]
  - Inappropriate schedule of drug administration [None]
  - Nausea [None]
  - Abdominal pain upper [None]
  - Arachnoiditis [None]
  - Crying [None]
  - Musculoskeletal stiffness [None]
  - Withdrawal syndrome [None]
  - Muscle tightness [None]
  - Feeling of body temperature change [None]
  - Chest discomfort [None]
  - Opisthotonus [None]
  - Dyspnoea exertional [None]
  - Back pain [None]
  - Condition aggravated [None]

NARRATIVE: CASE EVENT DATE: 20170816
